FAERS Safety Report 6271294-5 (Version None)
Quarter: 2009Q3

REPORT INFORMATION
  Report Type: 
  Country: None (occurrence: None)
  Receive Date: 20090717
  Receipt Date: 20090708
  Transmission Date: 20100115
  Serious: Yes (Other)
  Sender: FDA-Public Use
  Company Number: FR-JNJFOC-20090704802

PATIENT

DRUGS (2)
  1. KETOCONAZOLE [Suspect]
     Indication: DRUG USE FOR UNKNOWN INDICATION
     Dosage: FOR 8 DAYS
     Route: 048
  2. VINFLUNINE [Interacting]
     Indication: NEOPLASM MALIGNANT
     Route: 042

REACTIONS (2)
  - DRUG INTERACTION [None]
  - NEUTROPENIA [None]
